FAERS Safety Report 11005466 (Version 2)
Quarter: 2016Q2

REPORT INFORMATION
  Report Type: Spontaneous
  Country: US (occurrence: US)
  Receive Date: 20150409
  Receipt Date: 20160415
  Transmission Date: 20160815
  Serious: No
  Sender: FDA-Public Use
  Company Number: US-ALLERGAN-1500608US

PATIENT
  Sex: Female
  Weight: 63.95 kg

DRUGS (3)
  1. LUMIGAN [Suspect]
     Active Substance: BIMATOPROST
     Indication: INTRAOCULAR PRESSURE INCREASED
     Dosage: 0.1 MG/ML, UNK
     Dates: start: 201412
  2. LUMIGAN [Suspect]
     Active Substance: BIMATOPROST
     Indication: DRY EYE
  3. VALSARTAN HCTZ [Concomitant]
     Active Substance: HYDROCHLOROTHIAZIDE\VALSARTAN
     Indication: HYPERTENSION
     Dosage: UNK UNK, QD

REACTIONS (5)
  - Inappropriate schedule of drug administration [Unknown]
  - Eye pruritus [Not Recovered/Not Resolved]
  - Photophobia [Not Recovered/Not Resolved]
  - Off label use [Unknown]
  - Erythema of eyelid [Not Recovered/Not Resolved]
